FAERS Safety Report 8111135-4 (Version None)
Quarter: 2012Q1

REPORT INFORMATION
  Report Type: 
  Country: None (occurrence: None)
  Receive Date: 20120203
  Receipt Date: 20110502
  Transmission Date: 20120608
  Serious: No
  Sender: FDA-Public Use
  Company Number: US-GLAXOSMITHKLINE-A0927038A

PATIENT
  Sex: Female
  Weight: 100 kg

DRUGS (3)
  1. LAMICTAL [Suspect]
     Indication: AFFECTIVE DISORDER
     Dosage: 100MG UNKNOWN
     Route: 065
  2. TOPAMAX [Concomitant]
     Indication: PRODUCT USED FOR UNKNOWN INDICATION
     Dosage: 100MG TWICE PER DAY
     Route: 065
  3. PRISTIQ [Suspect]
     Indication: PRODUCT USED FOR UNKNOWN INDICATION
     Route: 065

REACTIONS (24)
  - TEARFULNESS [None]
  - PRESSURE OF SPEECH [None]
  - IRRITABILITY [None]
  - IMPAIRED WORK ABILITY [None]
  - COGNITIVE DISORDER [None]
  - ELEVATED MOOD [None]
  - RESTLESSNESS [None]
  - CRYING [None]
  - DEPRESSION [None]
  - SOMNOLENCE [None]
  - MALAISE [None]
  - ANXIETY [None]
  - ASTHENIA [None]
  - NEGATIVISM [None]
  - DEPRESSED MOOD [None]
  - INSOMNIA [None]
  - MOOD ALTERED [None]
  - JUDGEMENT IMPAIRED [None]
  - ADJUSTMENT DISORDER WITH MIXED ANXIETY AND DEPRESSED MOOD [None]
  - DECREASED INTEREST [None]
  - STRESS [None]
  - FATIGUE [None]
  - FEELING OF DESPAIR [None]
  - DRUG INEFFECTIVE [None]
